FAERS Safety Report 4496272-8 (Version None)
Quarter: 2004Q3

REPORT INFORMATION
  Report Type: 
  Country: None (occurrence: None)
  Receive Date: 20040921
  Receipt Date: 20040322
  Transmission Date: 20050211
  Serious: Yes (Death)
  Sender: FDA-Public Use
  Company Number: 163-20785-04030561

PATIENT
  Age: 58 Year
  Sex: Male
  Weight: 40.3248 kg

DRUGS (13)
  1. THALOMID [Suspect]
     Indication: PANCREATIC CARCINOMA
     Dosage: 200-300MG, DAILY, ORAL
     Route: 048
     Dates: start: 20031010, end: 20031104
  2. CELEBREX [Suspect]
     Indication: PANCREATIC CARCINOMA
     Dosage: 400 MG, BID, ORAL
     Route: 048
     Dates: start: 20031010, end: 20031104
  3. GEMZAR [Suspect]
     Indication: PANCREATIC CARCINOMA
     Dosage: 1000 MG/M2
     Dates: start: 20031022, end: 20031104
  4. PREVACID [Concomitant]
  5. COLACE (DOCUSATE SODIUM) [Concomitant]
  6. MS CONTIN [Concomitant]
  7. ACETYLSALICYLIC ACID SRT [Concomitant]
  8. OXYCODONE (OXYCODONE) [Concomitant]
  9. EX-LAX [Concomitant]
  10. PROMETHAZINE [Concomitant]
  11. ZOFRAN [Concomitant]
  12. PERI-COLACE (PERI-COLACE) [Concomitant]
  13. COMPAZINE [Concomitant]

REACTIONS (4)
  - DEATH [None]
  - DISEASE PROGRESSION [None]
  - NAUSEA [None]
  - SEDATION [None]
